FAERS Safety Report 7638149-2 (Version None)
Quarter: 2011Q3

REPORT INFORMATION
  Report Type: 
  Country: None (occurrence: None)
  Receive Date: 20110727
  Receipt Date: 20110714
  Transmission Date: 20111222
  Serious: Yes (Hospitalization)
  Sender: FDA-Public Use
  Company Number: US-JNJFOC-20110707246

PATIENT
  Sex: Female
  Weight: 67.59 kg

DRUGS (9)
  1. CELEBREX [Concomitant]
     Indication: RHEUMATOID ARTHRITIS
  2. SYNTHROID [Concomitant]
     Indication: HYPOTHYROIDISM
     Route: 048
  3. REMICADE [Suspect]
     Indication: RHEUMATOID ARTHRITIS
     Route: 017
  4. REMICADE [Suspect]
     Route: 017
     Dates: end: 20110616
  5. METHOTREXATE [Concomitant]
     Indication: RHEUMATOID ARTHRITIS
     Route: 048
  6. NEXIUM [Concomitant]
     Indication: GASTRIC DISORDER
     Route: 048
  7. MAXZIDE [Concomitant]
     Indication: HYPERTENSION
     Route: 048
  8. REMICADE [Suspect]
     Route: 017
     Dates: start: 20110316
  9. SIMVASTATIN [Concomitant]
     Indication: BLOOD CHOLESTEROL INCREASED
     Route: 048

REACTIONS (7)
  - HYPOTENSION [None]
  - HEADACHE [None]
  - GALLBLADDER OPERATION [None]
  - INFUSION RELATED REACTION [None]
  - ERYTHEMA [None]
  - PRESYNCOPE [None]
  - GASTRIC DISORDER [None]
